FAERS Safety Report 26162333 (Version 1)
Quarter: 2025Q4

REPORT INFORMATION
  Report Type: Spontaneous
  Country: GB (occurrence: GB)
  Receive Date: 20251216
  Receipt Date: 20251216
  Transmission Date: 20260118
  Serious: Yes (Disabling)
  Sender: HETERO
  Company Number: None

PATIENT
  Sex: Female

DRUGS (1)
  1. PREGABALIN [Suspect]
     Active Substance: PREGABALIN
     Indication: Anxiety
     Dosage: 600 MILLIGRAM, QD(200MG X 3 DAILY)
     Route: 065
     Dates: start: 20250807

REACTIONS (1)
  - Sleep disorder [Not Recovered/Not Resolved]
